FAERS Safety Report 5957058-8 (Version None)
Quarter: 2008Q4

REPORT INFORMATION
  Report Type: 
  Country: None (occurrence: None)
  Receive Date: 20081117
  Receipt Date: 20081117
  Transmission Date: 20090506
  Serious: Yes (Life-Threatening, Hospitalization, Disabling, Other)
  Sender: FDA-Public Use
  Company Number: None

PATIENT
  Age: 31 Year
  Sex: Female
  Weight: 63 kg

DRUGS (1)
  1. CYMBALTA [Suspect]
     Indication: DEPRESSION
     Dosage: 120MG DAILY PO
     Route: 048
     Dates: start: 20080601, end: 20081107

REACTIONS (12)
  - AMNESIA [None]
  - CORRECTIVE LENS USER [None]
  - CRYING [None]
  - DYSKINESIA [None]
  - HEADACHE [None]
  - MOOD SWINGS [None]
  - MYALGIA [None]
  - NAUSEA [None]
  - PARAESTHESIA [None]
  - SUICIDAL IDEATION [None]
  - THINKING ABNORMAL [None]
  - VISUAL IMPAIRMENT [None]
